FAERS Safety Report 4348244-1 (Version None)
Quarter: 2004Q1

REPORT INFORMATION
  Report Type: 
  Country: None (occurrence: None)
  Receive Date: 20040329
  Receipt Date: 20031125
  Transmission Date: 20041129
  Serious: No
  Sender: FDA-Public Use
  Company Number: USA031153426

PATIENT
  Age: 9 Year
  Sex: Female
  Weight: 24 kg

DRUGS (5)
  1. STRATTERA [Suspect]
     Indication: ATTENTION DEFICIT/HYPERACTIVITY DISORDER
     Dosage: 40 MG/DAY
     Dates: start: 20030801
  2. PULMICORT [Concomitant]
  3. SINGULAIR [Concomitant]
  4. ALLEGRA [Concomitant]
  5. XOPENEX [Concomitant]

REACTIONS (4)
  - DEPRESSED MOOD [None]
  - DRUG EFFECT DECREASED [None]
  - MOOD SWINGS [None]
  - WEIGHT DECREASED [None]
